FAERS Safety Report 18636119 (Version 2)
Quarter: 2021Q1

REPORT INFORMATION
  Report Type: Spontaneous
  Country: JP (occurrence: JP)
  Receive Date: 20201218
  Receipt Date: 20210219
  Transmission Date: 20210419
  Serious: Yes (Hospitalization, Disabling)
  Sender: FDA-Public Use
  Company Number: JP-CELGENEUS-JPN-20201204458

PATIENT
  Age: 48 Year
  Sex: Male
  Weight: 46.9 kg

DRUGS (8)
  1. LOXONIN [Concomitant]
     Active Substance: LOXOPROFEN SODIUM
     Indication: PRODUCT USED FOR UNKNOWN INDICATION
     Dosage: 180 MILLIGRAM
     Route: 048
  2. NEXIUM [Concomitant]
     Active Substance: ESOMEPRAZOLE MAGNESIUM
     Indication: PRODUCT USED FOR UNKNOWN INDICATION
     Dosage: 20 MILLIGRAM
     Route: 048
  3. ABRAXANE [Suspect]
     Active Substance: PACLITAXEL
     Indication: OFF LABEL USE
  4. CALONAL [Concomitant]
     Active Substance: ACETAMINOPHEN
     Indication: PRODUCT USED FOR UNKNOWN INDICATION
     Dosage: 400 MILLIGRAM
     Route: 048
     Dates: start: 20191117
  5. CARBOPLATIN. [Suspect]
     Active Substance: CARBOPLATIN
     Indication: THYMOMA
     Dosage: 840 MILLIGRAM
     Route: 041
     Dates: start: 20191114, end: 20191114
  6. CARBOCISTEINE [Concomitant]
     Active Substance: CARBOCYSTEINE
     Indication: PRODUCT USED FOR UNKNOWN INDICATION
     Dosage: 1500 MILLIGRAM
     Route: 048
  7. ABRAXANE [Suspect]
     Active Substance: PACLITAXEL
     Indication: THYMOMA
     Dosage: 150 MILLIGRAM
     Route: 041
     Dates: start: 20191114, end: 20191114
  8. ERYTHROMYCIN. [Concomitant]
     Active Substance: ERYTHROMYCIN
     Indication: PRODUCT USED FOR UNKNOWN INDICATION
     Dosage: 400 MILLIGRAM
     Route: 048
     Dates: start: 20191117

REACTIONS (3)
  - Aplasia pure red cell [Not Recovered/Not Resolved]
  - Stomatitis [Recovering/Resolving]
  - Acquired amegakaryocytic thrombocytopenia [Not Recovered/Not Resolved]

NARRATIVE: CASE EVENT DATE: 20191117
